FAERS Safety Report 4368430-4 (Version None)
Quarter: 2004Q2

REPORT INFORMATION
  Report Type: 
  Country: None (occurrence: None)
  Receive Date: 20040602
  Receipt Date: 20031210
  Transmission Date: 20050107
  Serious: No
  Sender: FDA-Public Use
  Company Number: US-GLAXOSMITHKLINE-A0442628A

PATIENT
  Age: 6 Year
  Sex: Male

DRUGS (2)
  1. AUGMENTIN [Suspect]
     Indication: PNEUMONIA
     Route: 048
     Dates: start: 20031101, end: 20031101
  2. ALBUTEROL [Concomitant]

REACTIONS (2)
  - RASH [None]
  - URTICARIA [None]
